FAERS Safety Report 10718714 (Version 1)
Quarter: 2015Q1

REPORT INFORMATION
  Report Type: Spontaneous
  Country: US (occurrence: US)
  Receive Date: 20150119
  Receipt Date: 20150119
  Transmission Date: 20150721
  Serious: No
  Sender: FDA-Public Use
  Company Number: US-UNITED THERAPEUTICS-UNT-2014-002158

PATIENT
  Sex: Male
  Weight: 113.38 kg

DRUGS (3)
  1. VELETRI [Suspect]
     Active Substance: EPOPROSTENOL
     Indication: PRODUCT USED FOR UNKNOWN INDICATION
  2. ADCIRCA [Concomitant]
     Active Substance: TADALAFIL
     Indication: PRODUCT USED FOR UNKNOWN INDICATION
  3. TYVASO [Suspect]
     Active Substance: TREPROSTINIL
     Indication: PULMONARY ARTERIAL HYPERTENSION
     Dosage: 18-54 MICROGRAMS, QID
     Dates: start: 20131224, end: 20140610

REACTIONS (13)
  - Abdominal distension [Recovering/Resolving]
  - Chest discomfort [Unknown]
  - Flushing [Unknown]
  - Drug ineffective [Unknown]
  - Back pain [Recovering/Resolving]
  - Constipation [Unknown]
  - Vomiting [Unknown]
  - Nausea [Recovering/Resolving]
  - Paraesthesia [Unknown]
  - Abdominal pain [Recovering/Resolving]
  - Musculoskeletal pain [Unknown]
  - Headache [Unknown]
  - Pain [Unknown]
